APPROVED DRUG PRODUCT: RISPERIDONE
Active Ingredient: RISPERIDONE
Strength: 1MG/ML
Dosage Form/Route: SOLUTION;ORAL
Application: A076797 | Product #001
Applicant: PRECISION DOSE INC
Approved: Jun 28, 2010 | RLD: No | RS: No | Type: DISCN